FAERS Safety Report 21636188 (Version 2)
Quarter: 2022Q4

REPORT INFORMATION
  Report Type: Report from Study
  Country: US (occurrence: US)
  Receive Date: 20221124
  Receipt Date: 20221124
  Transmission Date: 20230112
  Serious: Yes (Other)
  Sender: FDA-Public Use
  Company Number: US-ABBVIE-4202224

PATIENT
  Sex: Male
  Weight: 67.131 kg

DRUGS (13)
  1. DUOPA [Suspect]
     Active Substance: CARBIDOPA\LEVODOPA
     Indication: Product used for unknown indication
     Route: 050
     Dates: start: 20190611, end: 202210
  2. DUOPA [Suspect]
     Active Substance: CARBIDOPA\LEVODOPA
  3. BUPROPION [Concomitant]
     Active Substance: BUPROPION
     Indication: Product used for unknown indication
     Dosage: 75MG
     Route: 048
  4. PROVIGIL [Concomitant]
     Active Substance: MODAFINIL
     Indication: Sleep disorder therapy
     Dosage: 100MG
     Route: 048
  5. EXELON [Concomitant]
     Active Substance: RIVASTIGMINE TARTRATE
     Indication: Memory impairment
     Dosage: 13.3MG
     Route: 061
  6. ALPRAZOLAM [Concomitant]
     Active Substance: ALPRAZOLAM
     Indication: Product used for unknown indication
     Dosage: 0.5MG
     Route: 048
  7. SINEMET [Concomitant]
     Active Substance: CARBIDOPA\LEVODOPA
     Indication: Product used for unknown indication
     Dosage: 25-100MG
     Route: 048
  8. ZOFRAN [Concomitant]
     Active Substance: ONDANSETRON HYDROCHLORIDE
     Indication: Nausea
     Dosage: 8MG
     Route: 048
  9. ZOFRAN [Concomitant]
     Active Substance: ONDANSETRON HYDROCHLORIDE
     Indication: Nausea
     Dosage: 8MG
     Route: 048
  10. ZOFRAN [Concomitant]
     Active Substance: ONDANSETRON HYDROCHLORIDE
     Indication: Nausea
     Dosage: 8MG
     Route: 048
  11. CLOBETASOL PROPIONATE [Concomitant]
     Active Substance: CLOBETASOL PROPIONATE
     Indication: Skin disorder
     Dosage: 0.05%
     Route: 061
  12. CLONAZEPAM [Concomitant]
     Active Substance: CLONAZEPAM
     Indication: Eye movement disorder
     Dosage: 2MG
     Route: 048
  13. REQUIP XL [Concomitant]
     Active Substance: ROPINIROLE HYDROCHLORIDE
     Indication: Product used for unknown indication
     Dosage: 2MG
     Route: 048

REACTIONS (8)
  - Stoma site discharge [Recovered/Resolved]
  - Device issue [Not Recovered/Not Resolved]
  - Dementia [Not Recovered/Not Resolved]
  - Confusional state [Unknown]
  - Medical device discomfort [Recovering/Resolving]
  - Mobility decreased [Not Recovered/Not Resolved]
  - Paranoia [Not Recovered/Not Resolved]
  - Infection [Recovered/Resolved]
